FAERS Safety Report 5270789-0 (Version None)
Quarter: 2007Q1

REPORT INFORMATION
  Report Type: 
  Country: None (occurrence: None)
  Receive Date: 20070321
  Receipt Date: 20070319
  Transmission Date: 20070707
  Serious: Yes (Other)
  Sender: FDA-Public Use
  Company Number: US-BRISTOL-MYERS SQUIBB COMPANY-13718481

PATIENT
  Age: 15 Year
  Sex: Female
  Weight: 68 kg

DRUGS (5)
  1. ABILIFY [Suspect]
     Indication: AFFECTIVE DISORDER
     Dosage: INITIAL DOSAGE WAS 2.5MG/DAILY
     Route: 048
  2. LAMICTAL [Concomitant]
     Route: 048
  3. PAXIL [Concomitant]
  4. METHOTREXATE [Concomitant]
     Dosage: ALSO 20MG ONCE PER WEEK
     Route: 048
  5. DIAMOX [Concomitant]

REACTIONS (1)
  - BENIGN INTRACRANIAL HYPERTENSION [None]
